FAERS Safety Report 22661852 (Version 3)
Quarter: 2023Q4

REPORT INFORMATION
  Report Type: Report from Study
  Country: NO (occurrence: NO)
  Receive Date: 20230630
  Receipt Date: 20231005
  Transmission Date: 20240110
  Serious: Yes (Hospitalization, Other)
  Sender: FDA-Public Use
  Company Number: NO-KARYOPHARM-2023KPT001544

PATIENT
  Age: 83 Year
  Sex: Male
  Weight: 78 kg

DRUGS (24)
  1. SELINEXOR [Suspect]
     Active Substance: SELINEXOR
     Indication: Plasma cell myeloma
     Dosage: 40 MG, DAY 1, 8, 15 AND 22 OF A 28 DAY CYCLE
     Route: 048
     Dates: start: 20230601
  2. LENALIDOMIDE [Suspect]
     Active Substance: LENALIDOMIDE
     Indication: Plasma cell myeloma
     Dosage: 1 TABLET, DAY 1, 8, 15, 22
     Route: 048
     Dates: start: 20230601
  3. LENALIDOMIDE [Suspect]
     Active Substance: LENALIDOMIDE
     Dosage: DAY 21 - 21 OF 28 (1 IN 1 D)
     Route: 048
     Dates: start: 20230601
  4. DEXAMETHASONE [Suspect]
     Active Substance: DEXAMETHASONE
     Indication: Plasma cell myeloma
     Dosage: 1 TABLET, DAY 1, 8, 15, 22
     Route: 048
     Dates: start: 20230601
  5. DEXAMETHASONE [Suspect]
     Active Substance: DEXAMETHASONE
     Dosage: DAY 1, 2, 8, 9, 15, 16 OF 28 DAY CYCLE (1 IN 1 WK)
     Route: 048
     Dates: start: 20230601
  6. NEXIUM I.V. [Concomitant]
     Active Substance: ESOMEPRAZOLE SODIUM
     Indication: Prophylaxis
     Dosage: 1 IN 1D
     Route: 048
     Dates: start: 20230601
  7. AKYNZEO [Concomitant]
     Indication: Prophylaxis
     Dosage: 1 TABLET, DAY 1, 8, 15, 22
     Route: 048
     Dates: start: 20230601
  8. AKYNZEO [Concomitant]
     Dosage: UNK
     Route: 048
  9. CALCIUM CARBONATE\CHOLECALCIFEROL [Concomitant]
     Active Substance: CALCIUM CARBONATE\CHOLECALCIFEROL
     Indication: Prophylaxis
     Dosage: 1 G/800 IE, QD
     Dates: start: 20230601
  10. ZOMETA [Concomitant]
     Active Substance: ZOLEDRONIC ACID
     Indication: Prophylaxis
     Dosage: 4 MG, 1X/4 WEEKS
     Route: 042
     Dates: start: 20230601
  11. EDOXABAN TOSYLATE [Concomitant]
     Active Substance: EDOXABAN TOSYLATE
     Indication: Product used for unknown indication
     Dosage: UNK
     Dates: start: 20230516
  12. SIMVASTATIN [Concomitant]
     Active Substance: SIMVASTATIN
     Indication: Prophylaxis
     Dosage: 1 IN 1D
     Route: 048
  13. SIMVASTATIN [Concomitant]
     Active Substance: SIMVASTATIN
     Dosage: 1 TABLET, DAY 1, 8, 15, 22
     Route: 048
     Dates: start: 20230601
  14. BACTRIM [Concomitant]
     Active Substance: SULFAMETHOXAZOLE\TRIMETHOPRIM
     Indication: Prophylaxis
     Dosage: 400 MG/80 MG, QD
     Route: 048
     Dates: start: 20230601
  15. VALTREX [Concomitant]
     Active Substance: VALACYCLOVIR HYDROCHLORIDE
     Indication: Prophylaxis
     Dosage: 2 IN 1D
     Route: 048
     Dates: start: 20230601
  16. VALTREX [Concomitant]
     Active Substance: VALACYCLOVIR HYDROCHLORIDE
     Dosage: 1 TABLET, DAY 1, 8, 15, 22
     Route: 048
     Dates: start: 20230601
  17. ALLOPURINOL [Concomitant]
     Active Substance: ALLOPURINOL
     Indication: Gout
     Dosage: 1 IN 1D
     Route: 048
     Dates: start: 20200701
  18. ALLOPURINOL [Concomitant]
     Active Substance: ALLOPURINOL
     Dosage: 1 TABLET, DAY 1, 8, 15, 22
     Route: 048
     Dates: start: 20230601
  19. AMOXICILLIN [Concomitant]
     Active Substance: AMOXICILLIN
     Indication: Infection
     Dosage: 1 TABLET, DAY 1, 8, 15, 22
     Route: 048
     Dates: start: 20230601
  20. AMOXICILLIN [Concomitant]
     Active Substance: AMOXICILLIN
     Dosage: 750 MG, TID
     Route: 048
     Dates: start: 20230615
  21. SODIUM CHLORIDE [Concomitant]
     Active Substance: SODIUM CHLORIDE
     Indication: Hyponatraemia
     Dosage: 2 IN 1D
     Route: 048
     Dates: start: 20230615
  22. SODIUM CHLORIDE [Concomitant]
     Active Substance: SODIUM CHLORIDE
     Dosage: 1 TABLET, DAY 1, 8, 15, 22
     Route: 048
     Dates: start: 20230601
  23. DEXAMETHASONE SODIUM PHOSPHATE [Concomitant]
     Active Substance: DEXAMETHASONE SODIUM PHOSPHATE
     Indication: Keratitis
     Route: 065
  24. CYCLOSPORINE [Concomitant]
     Active Substance: CYCLOSPORINE
     Indication: Keratitis
     Route: 065

REACTIONS (2)
  - Hyponatraemia [Recovered/Resolved]
  - Fatigue [Not Recovered/Not Resolved]

NARRATIVE: CASE EVENT DATE: 20230602
